FAERS Safety Report 8844960 (Version 1)
Quarter: 2012Q4

REPORT INFORMATION
  Report Type: 
  Country: US (occurrence: US)
  Receive Date: 20121017
  Receipt Date: 20121017
  Transmission Date: 20130627
  Serious: Yes (Hospitalization, Disabling, Other)
  Sender: FDA-Public Use
  Company Number: US-009507513-2011SP025677

PATIENT

DRUGS (11)
  1. NUVARING [Suspect]
     Indication: CONTRACEPTION
     Route: 067
     Dates: start: 200801, end: 20081031
  2. NUVARING [Suspect]
     Indication: MENSTRUAL CYCLE MANAGEMENT
     Dosage: UNK
     Route: 067
     Dates: start: 200801, end: 20081031
  3. NUVARING [Suspect]
     Dosage: UNK
     Route: 067
     Dates: start: 200801, end: 20081031
  4. NUVARING [Suspect]
     Dosage: UNK
     Route: 067
     Dates: start: 200801, end: 20081031
  5. NUVARING [Suspect]
     Dosage: UNK
     Route: 067
     Dates: start: 200801, end: 20081031
  6. NUVARING [Suspect]
     Dosage: UNK
     Route: 067
     Dates: start: 200801, end: 20081031
  7. NUVARING [Suspect]
     Dosage: UNK
     Route: 067
     Dates: start: 200801, end: 20081031
  8. NUVARING [Suspect]
     Dosage: UNK
     Dates: start: 200811, end: 20090609
  9. LORTAB [Suspect]
     Indication: PLEURITIC PAIN
     Dosage: 1 DF, ONCE
     Dates: start: 20090608, end: 20090608
  10. VITAMINS (UNSPECIFIED) [Concomitant]
     Indication: MEDICAL DIET
     Dates: start: 20090430, end: 20090609
  11. Z-PAC [Concomitant]
     Indication: PLEURISY
     Dosage: UNK
     Route: 048
     Dates: start: 20090608, end: 20090608

REACTIONS (19)
  - Hypercoagulation [Unknown]
  - Ovarian cyst [Unknown]
  - Hyponatraemia [Unknown]
  - Pneumonia [Recovered/Resolved]
  - Pleural effusion [Unknown]
  - Pulmonary embolism [Unknown]
  - Pulmonary infarction [Unknown]
  - Pleurisy [Unknown]
  - Anaemia [Unknown]
  - Emotional disorder [Unknown]
  - Mental disorder [Unknown]
  - Pelvic mass [Unknown]
  - Drug intolerance [Unknown]
  - Upper respiratory tract infection [Unknown]
  - Bronchitis [Unknown]
  - Urinary tract infection [Unknown]
  - Vaginal haemorrhage [Unknown]
  - Vaginal discharge [Unknown]
  - Metrorrhagia [Unknown]
